FAERS Safety Report 18102222 (Version 5)
Quarter: 2020Q3

REPORT INFORMATION
  Report Type: Spontaneous
  Country: US (occurrence: US)
  Receive Date: 20200803
  Receipt Date: 20200828
  Transmission Date: 20201103
  Serious: No
  Sender: FDA-Public Use
  Company Number: US-AMGEN-USASP2020121368

PATIENT
  Age: 57 Year
  Sex: Female
  Weight: 61.32 kg

DRUGS (3)
  1. NEULASTA [Suspect]
     Active Substance: PEGFILGRASTIM
     Indication: PRODUCT USED FOR UNKNOWN INDICATION
     Dosage: 6 MILLIGRAM (EVERY 2 WEEKS)
     Route: 058
  2. NEULASTA [Suspect]
     Active Substance: PEGFILGRASTIM
     Dosage: 6 MILLIGRAM (EVERY 2 WEEKS)
     Route: 058
  3. NEULASTA [Suspect]
     Active Substance: PEGFILGRASTIM
     Dosage: 6 MILLIGRAM (EVERY 2 WEEKS)
     Route: 058

REACTIONS (4)
  - Application site pain [Unknown]
  - Mass [Unknown]
  - Device occlusion [Unknown]
  - Swelling [Unknown]

NARRATIVE: CASE EVENT DATE: 20200725
